FAERS Safety Report 6850624-7 (Version None)
Quarter: 2010Q3

REPORT INFORMATION
  Report Type: 
  Country: None (occurrence: None)
  Receive Date: 20100716
  Receipt Date: 20071017
  Transmission Date: 20110219
  Serious: Yes (Other)
  Sender: FDA-Public Use
  Company Number: US-PFIZER INC-2007088590

PATIENT
  Sex: Female
  Weight: 113.4 kg

DRUGS (5)
  1. CHANTIX [Suspect]
     Indication: SMOKING CESSATION THERAPY
     Dates: start: 20070901
  2. PROZAC [Concomitant]
  3. LAMICTAL [Concomitant]
  4. ABILIFY [Concomitant]
  5. TEMAZEPAM [Concomitant]

REACTIONS (3)
  - ABNORMAL DREAMS [None]
  - DEPRESSION [None]
  - SUICIDAL IDEATION [None]
